FAERS Safety Report 4529343-8 (Version None)
Quarter: 2004Q4

REPORT INFORMATION
  Report Type: 
  Country: None (occurrence: None)
  Receive Date: 20041214
  Receipt Date: 20041209
  Transmission Date: 20050328
  Serious: Yes (Death, Life-Threatening, Hospitalization)
  Sender: FDA-Public Use
  Company Number: 2004CG02354

PATIENT
  Age: 53 Year
  Sex: Male

DRUGS (4)
  1. IRESSA [Suspect]
     Indication: BRONCHIAL CARCINOMA
     Dosage: 250 MG QD PO
     Route: 048
     Dates: start: 20041022, end: 20041110
  2. IRESSA [Suspect]
     Indication: BRONCHIAL CARCINOMA
     Dosage: 250 MG QD PO
     Route: 048
     Dates: start: 20041113
  3. CARBOPLATIN [Concomitant]
  4. GEMZAR [Concomitant]

REACTIONS (5)
  - ACUTE RESPIRATORY DISTRESS SYNDROME [None]
  - DIABETES INSIPIDUS [None]
  - DISEASE PROGRESSION [None]
  - LUNG INFECTION [None]
  - PULMONARY INTERSTITIAL EMPHYSEMA SYNDROME [None]
